FAERS Safety Report 5720113-1 (Version None)
Quarter: 2008Q2

REPORT INFORMATION
  Report Type: 
  Country: None (occurrence: None)
  Receive Date: 20080428
  Receipt Date: 20080221
  Transmission Date: 20081010
  Serious: No
  Sender: FDA-Public Use
  Company Number: US-AMGEN-US266465

PATIENT
  Sex: Female

DRUGS (9)
  1. SENSIPAR [Suspect]
     Indication: HYPERPARATHYROIDISM SECONDARY
     Route: 048
  2. ACTOS [Concomitant]
     Route: 048
  3. GLYBURIDE [Concomitant]
     Route: 048
  4. ATENOLOL [Concomitant]
     Route: 048
  5. NORVASC [Concomitant]
     Route: 048
  6. K-DUR [Concomitant]
     Route: 048
  7. TRICOR [Concomitant]
     Route: 048
  8. NEPHROCAPS [Concomitant]
     Route: 048
  9. TORSEMIDE [Concomitant]
     Route: 048

REACTIONS (2)
  - ANXIETY [None]
  - HEART RATE IRREGULAR [None]
